FAERS Safety Report 4980473-6 (Version None)
Quarter: 2006Q2

REPORT INFORMATION
  Report Type: 
  Country: None (occurrence: None)
  Receive Date: 20060424
  Receipt Date: 20060329
  Transmission Date: 20061013
  Serious: Yes (Hospitalization, Other)
  Sender: FDA-Public Use
  Company Number: AU-AMGEN-US174578

PATIENT
  Sex: Female
  Weight: 78 kg

DRUGS (13)
  1. ARANESP [Suspect]
     Indication: RENAL FAILURE CHRONIC
     Route: 058
     Dates: start: 20050331, end: 20050615
  2. EPREX [Suspect]
     Dates: start: 20050601
  3. ALLOPURINOL [Suspect]
     Route: 048
  4. GLYCERYL TRINITRATE [Concomitant]
  5. VERAPAMIL HYDROCHLORIDE [Concomitant]
  6. FUROSEMIDE [Concomitant]
  7. RABEPRAZOLE SODIUM [Concomitant]
  8. WARFARIN [Concomitant]
  9. CANDESARTAN CILEXETIL [Concomitant]
  10. GLICLAZIDE [Concomitant]
  11. DIGOXIN [Concomitant]
  12. MEDROXYPROGESTERONE ACETATE [Concomitant]
  13. RAMIPRIL [Concomitant]

REACTIONS (9)
  - APLASIA PURE RED CELL [None]
  - ATRIAL FIBRILLATION [None]
  - BLOOD FOLATE INCREASED [None]
  - GASTRIC HAEMORRHAGE [None]
  - RASH [None]
  - RETICULOCYTOPENIA [None]
  - SERUM FERRITIN INCREASED [None]
  - THERAPEUTIC RESPONSE DECREASED [None]
  - VITAMIN B12 INCREASED [None]
